FAERS Safety Report 9301731 (Version 1)
Quarter: 2012Q4

REPORT INFORMATION
  Report Type: Spontaneous
  Country: US (occurrence: None)
  Receive Date: 20121109
  Receipt Date: 20121109
  Transmission Date: 20130627
  Serious: Yes (Death)
  Sender: FDA-Public Use
  Company Number: 2012S1000096

PATIENT
  Age: 61 Year
  Sex: Female

DRUGS (5)
  1. CUBICIN [Suspect]
     Indication: STAPHYLOCOCCAL INFECTION
  2. VANCOMYCIN [Concomitant]
  3. CEFEPIME [Concomitant]
  4. CIPROFLOXACIN [Concomitant]
  5. CLINDAMYCIN [Concomitant]

REACTIONS (4)
  - Cardiac arrest [None]
  - Procedural complication [None]
  - Escherichia bacteraemia [None]
  - Urinary tract infection [None]
